FAERS Safety Report 7502554-5 (Version None)
Quarter: 2011Q2

REPORT INFORMATION
  Report Type: 
  Country: None (occurrence: None)
  Receive Date: 20110517
  Receipt Date: 20110509
  Transmission Date: 20111010
  Serious: Yes (Other)
  Sender: FDA-Public Use
  Company Number: SP03680

PATIENT
  Sex: Female

DRUGS (1)
  1. OSMOPREP [Suspect]
     Indication: PRODUCT USED FOR UNKNOWN INDICATION
     Dosage: ORAL
     Route: 048
     Dates: start: 20110101, end: 20110101

REACTIONS (4)
  - NASAL DISORDER [None]
  - NAUSEA [None]
  - ANGIOEDEMA [None]
  - VOMITING [None]
